FAERS Safety Report 6818719-1 (Version None)
Quarter: 2010Q3

REPORT INFORMATION
  Report Type: 
  Country: None (occurrence: None)
  Receive Date: 20100706
  Receipt Date: 20100622
  Transmission Date: 20110219
  Serious: No
  Sender: FDA-Public Use
  Company Number: US-ELI_LILLY_AND_COMPANY-US201006006226

PATIENT
  Age: 31 Year
  Sex: Female

DRUGS (4)
  1. CYMBALTA [Suspect]
     Indication: DEPRESSION
     Dosage: 60 MG, DAILY (1/D)
     Dates: start: 20050101, end: 20100605
  2. CYMBALTA [Suspect]
     Dosage: 30 MG, DAILY (1/D)
     Dates: start: 20100606, end: 20100619
  3. SPIRONOLACTONE [Concomitant]
  4. FLONASE [Concomitant]

REACTIONS (7)
  - ACNE [None]
  - DRUG WITHDRAWAL SYNDROME [None]
  - HELICOBACTER GASTRITIS [None]
  - HEPATIC ENZYME INCREASED [None]
  - NAUSEA [None]
  - SEASONAL ALLERGY [None]
  - VERTIGO [None]
